FAERS Safety Report 8344111-7 (Version None)
Quarter: 2012Q2

REPORT INFORMATION
  Report Type: 
  Country: None (occurrence: None)
  Receive Date: 20120508
  Receipt Date: 20120427
  Transmission Date: 20120825
  Serious: Yes (Hospitalization, Other)
  Sender: FDA-Public Use
  Company Number: JP-VERTEX PHARMACEUTICALS INC.-AE-2012-005408

PATIENT
  Age: 54 Year
  Sex: Male

DRUGS (60)
  1. TELAVIC (TELAPREVIR) [Suspect]
     Indication: HEPATITIS C
     Route: 048
     Dates: start: 20120221, end: 20120410
  2. LOXONIN [Concomitant]
     Route: 048
     Dates: start: 20120303
  3. FULMETA [Concomitant]
     Route: 061
     Dates: start: 20120227, end: 20120227
  4. FULMETA [Concomitant]
     Route: 061
     Dates: start: 20120301, end: 20120301
  5. FULMETA [Concomitant]
     Route: 061
     Dates: start: 20120328, end: 20120328
  6. ATARAX [Concomitant]
     Route: 048
     Dates: start: 20120313, end: 20120320
  7. PETROLATUM SALICYLATE [Concomitant]
     Route: 061
     Dates: start: 20120328, end: 20120328
  8. LANSOPRAZOLE [Concomitant]
     Route: 048
     Dates: start: 20120419, end: 20120419
  9. LANSOPRAZOLE [Concomitant]
     Route: 048
     Dates: start: 20120424, end: 20120425
  10. FULMETA [Concomitant]
     Route: 061
     Dates: start: 20120321, end: 20120321
  11. TALION OD [Concomitant]
     Route: 048
     Dates: start: 20120413, end: 20120422
  12. HIRUDOID [Concomitant]
     Route: 061
     Dates: start: 20120321, end: 20120321
  13. HIRUDOID [Concomitant]
     Route: 061
     Dates: start: 20120328, end: 20120328
  14. HIRUDOID [Concomitant]
     Route: 051
     Dates: start: 20120416, end: 20120416
  15. ZOLPIDEM [Concomitant]
     Route: 048
     Dates: start: 20120423, end: 20120424
  16. WHITE PATROLATUM [Concomitant]
     Route: 061
     Dates: start: 20120424, end: 20120424
  17. OLOPATADINE HCL [Concomitant]
     Route: 048
     Dates: start: 20120424, end: 20120425
  18. CELEBREX [Concomitant]
     Route: 048
     Dates: start: 20120321, end: 20120322
  19. CELEBREX [Concomitant]
     Route: 048
     Dates: start: 20120331, end: 20120403
  20. ALLOPURINOL [Concomitant]
     Route: 048
     Dates: start: 20120404, end: 20120410
  21. VOLTAREN [Concomitant]
     Route: 054
     Dates: start: 20120221, end: 20120221
  22. PEG-INTRON [Concomitant]
     Indication: HEPATITIS C
     Route: 058
     Dates: start: 20120221
  23. REBETOL [Concomitant]
     Route: 048
     Dates: start: 20120313, end: 20120410
  24. LOXONIN [Concomitant]
     Route: 048
     Dates: end: 20120315
  25. POSTERISAN [Concomitant]
     Route: 061
     Dates: start: 20120225, end: 20120225
  26. FULMETA [Concomitant]
     Route: 061
     Dates: start: 20120306, end: 20120306
  27. FULMETA [Concomitant]
     Route: 061
     Dates: start: 20120411, end: 20120411
  28. CLEMASTINE FUMARATE [Concomitant]
     Route: 048
     Dates: start: 20120413, end: 20120422
  29. CELEBREX [Concomitant]
     Route: 048
     Dates: start: 20120404, end: 20120406
  30. FUNGIZONE [Concomitant]
     Route: 048
     Dates: start: 20120411, end: 20120411
  31. ISODINE [Concomitant]
     Route: 049
     Dates: start: 20120411, end: 20120411
  32. COTRIM [Concomitant]
     Route: 048
     Dates: start: 20120420, end: 20120425
  33. NERISONA [Concomitant]
     Route: 061
     Dates: start: 20120416, end: 20120416
  34. REBETOL [Concomitant]
     Indication: HEPATITIS C
     Route: 048
     Dates: start: 20120221, end: 20120312
  35. LOXONIN [Concomitant]
     Route: 048
     Dates: start: 20120302, end: 20120302
  36. CLEMASTINE FUMARATE [Concomitant]
     Route: 048
     Dates: start: 20120301, end: 20120412
  37. CLEMASTINE FUMARATE [Concomitant]
     Route: 048
     Dates: start: 20120424, end: 20120425
  38. ATARAX [Concomitant]
     Route: 048
     Dates: start: 20120321, end: 20120422
  39. CELEBREX [Concomitant]
     Route: 048
     Dates: start: 20120323, end: 20120327
  40. HIRUDOID [Concomitant]
     Route: 061
     Dates: start: 20120411, end: 20120411
  41. PETROLATUM SALICYLATE [Concomitant]
     Route: 061
     Dates: start: 20120321, end: 20120321
  42. COTRIM [Concomitant]
     Route: 048
     Dates: start: 20120412, end: 20120415
  43. POLYMYXIN B SULFATE [Concomitant]
     Route: 048
     Dates: start: 20120411, end: 20120415
  44. TALION OD [Concomitant]
     Route: 061
     Dates: start: 20120227, end: 20120412
  45. ATARAX [Concomitant]
     Route: 048
     Dates: start: 20120424, end: 20120425
  46. LANSOPRAZOLE [Concomitant]
     Route: 048
     Dates: start: 20120418, end: 20120418
  47. LENDORMIN [Concomitant]
     Route: 048
     Dates: start: 20120420, end: 20120422
  48. REBETOL [Concomitant]
     Route: 048
     Dates: start: 20120420
  49. LOXONIN [Concomitant]
     Route: 048
     Dates: start: 20120222, end: 20120301
  50. FULMETA [Concomitant]
     Route: 061
     Dates: start: 20120313, end: 20120313
  51. NERISONA [Concomitant]
     Route: 061
     Dates: start: 20120421, end: 20120421
  52. PREDNISOLONE [Concomitant]
     Route: 048
     Dates: start: 20120418, end: 20120425
  53. LANSOPRAZOLE [Concomitant]
     Route: 048
     Dates: start: 20120420, end: 20120421
  54. CLOBETASOL PROPIONATE [Concomitant]
     Route: 061
     Dates: start: 20120424, end: 20120424
  55. LOXONIN [Concomitant]
     Route: 048
     Dates: start: 20120413, end: 20120422
  56. FULMETA [Concomitant]
     Route: 061
     Dates: start: 20120413, end: 20120413
  57. CELEBREX [Concomitant]
     Route: 048
     Dates: start: 20120313, end: 20120320
  58. CELEBREX [Concomitant]
     Route: 048
     Dates: start: 20120328, end: 20120330
  59. CELEBREX [Concomitant]
     Route: 048
     Dates: start: 20120407, end: 20120413
  60. LEVOFLOXACIN [Concomitant]
     Route: 048
     Dates: start: 20120415, end: 20120417

REACTIONS (3)
  - TOXIC SKIN ERUPTION [None]
  - AGRANULOCYTOSIS [None]
  - NEUTROPENIA [None]
